FAERS Safety Report 7267318-9 (Version None)
Quarter: 2011Q1

REPORT INFORMATION
  Report Type: 
  Country: None (occurrence: None)
  Receive Date: 20110201
  Receipt Date: 20100423
  Transmission Date: 20110831
  Serious: No
  Sender: FDA-Public Use
  Company Number: A0838759A

PATIENT
  Sex: Female

DRUGS (8)
  1. VERELAN PM [Concomitant]
     Dosage: 100MG TWICE PER DAY
     Route: 048
  2. PULMICORT [Concomitant]
     Dosage: 2PUFF TWICE PER DAY
     Route: 055
  3. OTHER MEDICATIONS [Concomitant]
  4. LEVOTHROID [Concomitant]
     Dosage: 137MCG PER DAY
     Route: 048
  5. XOPENEX [Concomitant]
     Dosage: 45MCG PER DAY
     Route: 055
  6. PROTOPIC [Concomitant]
     Route: 061
  7. ARIXTRA [Suspect]
     Dosage: 1INJ PER DAY
     Route: 058
     Dates: start: 20091208
  8. FIORICET [Concomitant]
     Route: 048

REACTIONS (1)
  - ALOPECIA [None]
